FAERS Safety Report 24260411 (Version 1)
Quarter: 2024Q3

REPORT INFORMATION
  Report Type: Spontaneous
  Country: AU (occurrence: None)
  Receive Date: 20240828
  Receipt Date: 20240828
  Transmission Date: 20241017
  Serious: Yes (Hospitalization)
  Sender: ASTRAZENECA
  Company Number: 2024A188676

PATIENT
  Age: 58 Year
  Sex: Male

DRUGS (2)
  1. OLAPARIB [Suspect]
     Active Substance: OLAPARIB
     Indication: Hormone-refractory prostate cancer
     Route: 048
  2. 177LU-PSMA-R2 [Suspect]
     Active Substance: 177LU-PSMA-R2
     Dosage: 8.5 GBQ

REACTIONS (2)
  - Cytopenia [Unknown]
  - Lower respiratory tract infection [Unknown]
